FAERS Safety Report 16513860 (Version 1)
Quarter: 2019Q3

REPORT INFORMATION
  Report Type: Spontaneous
  Country: US (occurrence: US)
  Receive Date: 20190701
  Receipt Date: 20190701
  Transmission Date: 20191004
  Serious: No
  Sender: FDA-Public Use
  Company Number: US-ROCHE-2243704

PATIENT
  Age: 5 Year
  Sex: Female
  Weight: 20.5 kg

DRUGS (1)
  1. CLONAZEPAM. [Suspect]
     Active Substance: CLONAZEPAM
     Indication: SLEEP APNOEA SYNDROME
     Route: 065

REACTIONS (1)
  - Behaviour disorder [Unknown]
